FAERS Safety Report 15139905 (Version 1)
Quarter: 2018Q3

REPORT INFORMATION
  Report Type: Spontaneous
  Country: US (occurrence: US)
  Receive Date: 20180713
  Receipt Date: 20180713
  Transmission Date: 20181010
  Serious: No
  Sender: FDA-Public Use
  Company Number: US-SA-2018SA185045

PATIENT
  Sex: Female

DRUGS (20)
  1. LEVOFLOXACIN. [Concomitant]
     Active Substance: LEVOFLOXACIN
  2. IN [Concomitant]
  3. KEVZARA [Suspect]
     Active Substance: SARILUMAB
  4. CLONAZEPAM. [Concomitant]
     Active Substance: CLONAZEPAM
  5. MELOXICAM. [Concomitant]
     Active Substance: MELOXICAM
  6. CELEBREX [Concomitant]
     Active Substance: CELECOXIB
  7. ALPRAZOLAM. [Concomitant]
     Active Substance: ALPRAZOLAM
  8. TOPAMAX [Concomitant]
     Active Substance: TOPIRAMATE
  9. OXYCODONE AND ACETAMINOPHEN [Concomitant]
     Active Substance: ACETAMINOPHEN\OXYCODONE HYDROCHLORIDE
  10. METHOTREXATE. [Concomitant]
     Active Substance: METHOTREXATE
  11. XANAX [Concomitant]
     Active Substance: ALPRAZOLAM
  12. METHYLPREDISOLONE [Concomitant]
     Active Substance: METHYLPREDNISOLONE
  13. CLONIDINE HCL [Concomitant]
     Active Substance: CLONIDINE HYDROCHLORIDE
  14. CLINDAMYCIN PHOSPHATE. [Concomitant]
     Active Substance: CLINDAMYCIN PHOSPHATE
  15. STRATTERA [Concomitant]
     Active Substance: ATOMOXETINE HYDROCHLORIDE
  16. HYDROCODONE BITARTRATE AND ACETAMINOPHEN [Concomitant]
     Active Substance: ACETAMINOPHEN\HYDROCODONE BITARTRATE
  17. LIOTHYRONINE [Concomitant]
     Active Substance: LIOTHYRONINE
  18. PILOCARPINE HYDROCHLORIDE. [Concomitant]
     Active Substance: PILOCARPINE HYDROCHLORIDE
  19. LEXAPRO [Concomitant]
     Active Substance: ESCITALOPRAM OXALATE
  20. AUGMENTINE [AMOXICILLIN;CLAVULANIC ACID] [Concomitant]

REACTIONS (1)
  - Blister [Recovered/Resolved]
